FAERS Safety Report 15318033 (Version 1)
Quarter: 2018Q3

REPORT INFORMATION
  Report Type: Spontaneous
  Country: US (occurrence: US)
  Receive Date: 20180817
  Receipt Date: 20180817
  Transmission Date: 20181010
  Serious: Yes (Hospitalization, Disabling)
  Sender: FDA-Public Use
  Company Number: None

PATIENT
  Age: 22 Year
  Sex: Male
  Weight: 61.65 kg

DRUGS (2)
  1. INVEGA [Suspect]
     Active Substance: PALIPERIDONE
     Indication: PSYCHOTIC DISORDER
     Dosage: ?          OTHER FREQUENCY:EVERY MONTH;?
     Route: 008
     Dates: start: 20141001, end: 20180121
  2. VRAYLAR [Concomitant]
     Active Substance: CARIPRAZINE

REACTIONS (4)
  - Sinusitis [None]
  - Confusional state [None]
  - Apathy [None]
  - Thinking abnormal [None]

NARRATIVE: CASE EVENT DATE: 20170601
